FAERS Safety Report 24653671 (Version 4)
Quarter: 2024Q4

REPORT INFORMATION
  Report Type: Spontaneous
  Country: US (occurrence: US)
  Receive Date: 20241122
  Receipt Date: 20241227
  Transmission Date: 20250115
  Serious: No
  Sender: PFIZER
  Company Number: US-PFIZER INC-202400301592

PATIENT
  Age: 49 Year
  Sex: Female
  Weight: 92.53 kg

DRUGS (7)
  1. GENOTROPIN [Suspect]
     Active Substance: SOMATROPIN
     Indication: Growth hormone deficiency
     Dosage: 0.2 MG, DAILY (IN EVENING)
  2. AMLODIPINE [Concomitant]
     Active Substance: AMLODIPINE BESYLATE
     Indication: Blood pressure abnormal
     Dosage: 7.5 MILLIGRAMS (IN THE MORNING)
  3. CLONIDINE [Concomitant]
     Active Substance: CLONIDINE
     Indication: Obsessive-compulsive disorder
     Dosage: 1 MG, DAILY (0.5 MG  IN THE MORNING, 0.3 MG AROUND LUNCH TIME, 0.2 MG IN THE EVENING)
  4. CLONIDINE [Concomitant]
     Active Substance: CLONIDINE
     Indication: Anxiety
  5. CALCIUM CITRATE\CHOLECALCIFEROL [Concomitant]
     Active Substance: CALCIUM CITRATE\CHOLECALCIFEROL
     Indication: Supplementation therapy
     Dosage: 600 MG, DAILY
  6. PAXIL [Concomitant]
     Active Substance: PAROXETINE HYDROCHLORIDE
     Indication: Anxiety
     Dosage: 60 MG, DAILY
  7. PAXIL [Concomitant]
     Active Substance: PAROXETINE HYDROCHLORIDE
     Indication: Obsessive-compulsive disorder

REACTIONS (2)
  - Drug dose omission by device [Unknown]
  - Device issue [Unknown]

NARRATIVE: CASE EVENT DATE: 20241113
